FAERS Safety Report 23313167 (Version 2)
Quarter: 2023Q4

REPORT INFORMATION
  Report Type: Spontaneous
  Country: TH (occurrence: TH)
  Receive Date: 20231219
  Receipt Date: 20231220
  Transmission Date: 20240110
  Serious: Yes (Death, Hospitalization, Other)
  Sender: FDA-Public Use
  Company Number: TH-002147023-NVSC2023TH267068

PATIENT
  Age: 47 Year
  Sex: Male

DRUGS (2)
  1. DABRAFENIB [Suspect]
     Active Substance: DABRAFENIB
     Indication: Metastatic malignant melanoma
     Dosage: 150 MG, BID
     Route: 065
  2. TRAMETINIB [Suspect]
     Active Substance: TRAMETINIB
     Indication: Metastatic malignant melanoma
     Dosage: 2 MG, QD
     Route: 065
     Dates: start: 20220320

REACTIONS (7)
  - Status epilepticus [Fatal]
  - Neutropenia [Unknown]
  - Seizure [Unknown]
  - Cerebral haemorrhage [Unknown]
  - Metastases to central nervous system [Unknown]
  - Pyrexia [Unknown]
  - Blood creatine phosphokinase increased [Unknown]

NARRATIVE: CASE EVENT DATE: 20230901
